FAERS Safety Report 4776622-5 (Version None)
Quarter: 2005Q3

REPORT INFORMATION
  Report Type: 
  Country: None (occurrence: None)
  Receive Date: 20050921
  Receipt Date: 20050908
  Transmission Date: 20060218
  Serious: Yes (Death, Hospitalization)
  Sender: FDA-Public Use
  Company Number: 216579

PATIENT
  Age: 65 Year
  Sex: Male
  Weight: 68 kg

DRUGS (5)
  1. AVASTIN [Suspect]
     Indication: PANCREATIC CARCINOMA METASTATIC
     Dosage: 10 MG/KG, INTRAVENOUS
     Route: 042
     Dates: start: 20050321, end: 20050624
  2. TAXOTERE [Suspect]
     Indication: PANCREATIC CARCINOMA METASTATIC
     Dosage: 35 MG/M2, INTRAVENOUS
     Route: 042
     Dates: start: 20050321, end: 20050624
  3. ATENOLOL [Concomitant]
  4. OXYCONTIN [Concomitant]
  5. HYDROCODONE BITARTRATE [Concomitant]

REACTIONS (56)
  - ABDOMINAL PAIN [None]
  - ACIDOSIS [None]
  - ANAEMIA [None]
  - ANURIA [None]
  - APPETITE DISORDER [None]
  - ASCITES [None]
  - ATELECTASIS [None]
  - BACTERIA URINE NO ORGANISM OBSERVED [None]
  - BAND NEUTROPHIL PERCENTAGE INCREASED [None]
  - BLOOD BICARBONATE DECREASED [None]
  - BLOOD CREATINE PHOSPHOKINASE INCREASED [None]
  - BLOOD CREATINE PHOSPHOKINASE MB INCREASED [None]
  - BLOOD CREATININE INCREASED [None]
  - BLOOD PH DECREASED [None]
  - BLOOD POTASSIUM INCREASED [None]
  - BLOOD UREA INCREASED [None]
  - CARDIAC ENZYMES INCREASED [None]
  - CARDIAC FAILURE [None]
  - CEREBRAL ATROPHY [None]
  - CEREBRAL DISORDER [None]
  - CHEYNE-STOKES RESPIRATION [None]
  - CHILLS [None]
  - COLITIS [None]
  - COMA [None]
  - CONSTIPATION [None]
  - DELIRIUM [None]
  - DYSPNOEA [None]
  - EFFUSION [None]
  - ELECTROENCEPHALOGRAM ABNORMAL [None]
  - ENCEPHALOPATHY [None]
  - GASTROINTESTINAL PERFORATION [None]
  - HAEMATOCRIT DECREASED [None]
  - HAEMOGLOBIN DECREASED [None]
  - HYPOCALCAEMIA [None]
  - HYPOPERFUSION [None]
  - HYPOTENSION [None]
  - HYPOVOLAEMIA [None]
  - HYPOXIC ENCEPHALOPATHY [None]
  - ILEUS [None]
  - INJURY [None]
  - LUNG DISORDER [None]
  - LUNG INFILTRATION [None]
  - METABOLIC ENCEPHALOPATHY [None]
  - NAUSEA [None]
  - PCO2 DECREASED [None]
  - PLATELET COUNT INCREASED [None]
  - PLEURAL EFFUSION [None]
  - PO2 DECREASED [None]
  - PYREXIA [None]
  - RENAL FAILURE ACUTE [None]
  - RESPIRATORY FAILURE [None]
  - SEPSIS [None]
  - SEPTIC SHOCK [None]
  - SYSTEMIC CANDIDA [None]
  - VOMITING [None]
  - WHITE BLOOD CELLS URINE POSITIVE [None]
